FAERS Safety Report 5795382-2 (Version None)
Quarter: 2008Q2

REPORT INFORMATION
  Report Type: 
  Country: None (occurrence: None)
  Receive Date: 20080630
  Receipt Date: 20080618
  Transmission Date: 20081010
  Serious: Yes (Hospitalization)
  Sender: FDA-Public Use
  Company Number: DE-PFIZER INC-2006111477

PATIENT
  Sex: Male
  Weight: 97 kg

DRUGS (7)
  1. SU-011,248 [Suspect]
     Indication: METASTATIC RENAL CELL CARCINOMA
     Route: 048
  2. SU-011,248 [Suspect]
     Route: 048
     Dates: start: 20060717, end: 20060813
  3. RIOPAN [Concomitant]
     Route: 048
  4. PANTOPRAZOL [Concomitant]
     Route: 048
  5. DEXAMETHASONE [Concomitant]
     Route: 048
  6. CALCITRIOL [Concomitant]
     Route: 048
     Dates: start: 20060621, end: 20060710
  7. AMOXICILLIN [Concomitant]
     Route: 048
     Dates: start: 20060703, end: 20060712

REACTIONS (1)
  - THROMBOPHLEBITIS [None]
